FAERS Safety Report 11218236 (Version 1)
Quarter: 2015Q2

REPORT INFORMATION
  Report Type: Spontaneous
  Country: US (occurrence: None)
  Receive Date: 20150624
  Receipt Date: 20150624
  Transmission Date: 20150821
  Serious: No
  Sender: FDA-Public Use
  Company Number: None

PATIENT
  Age: 75 Year
  Sex: Female

DRUGS (10)
  1. PROCHLORPER [Concomitant]
  2. IBRANCE [Suspect]
     Active Substance: PALBOCICLIB
     Indication: MALIGNANT NIPPLE NEOPLASM
     Dosage: 75MG DAILY FOR 21 DAYS ORAL
     Route: 048
     Dates: start: 20150610
  3. ONDANSETRON [Concomitant]
     Active Substance: ONDANSETRON
  4. FUROSEMIDE. [Concomitant]
     Active Substance: FUROSEMIDE
  5. SPIRONOLACT [Concomitant]
  6. FENTANYL. [Concomitant]
     Active Substance: FENTANYL
  7. OXYCODONE AND ACETAMINOPHEN [Concomitant]
     Active Substance: ACETAMINOPHEN\OXYCODONE\OXYCODONE HYDROCHLORIDE
  8. METHYLPRED [Concomitant]
     Active Substance: METHYLPREDNISOLONE
  9. RAMIPRIL. [Concomitant]
     Active Substance: RAMIPRIL
  10. LETROZOLE. [Concomitant]
     Active Substance: LETROZOLE

REACTIONS (4)
  - Pain in extremity [None]
  - Arthralgia [None]
  - Hypoaesthesia [None]
  - Paraesthesia [None]

NARRATIVE: CASE EVENT DATE: 20150617
